FAERS Safety Report 8016209-4 (Version None)
Quarter: 2011Q4

REPORT INFORMATION
  Report Type: 
  Country: None (occurrence: None)
  Receive Date: 20111230
  Receipt Date: 20111220
  Transmission Date: 20120403
  Serious: Yes (Hospitalization)
  Sender: FDA-Public Use
  Company Number: JP-SANOFI-AVENTIS-2011SA049666

PATIENT
  Age: 45 Year
  Sex: Male
  Weight: 68 kg

DRUGS (17)
  1. APIDRA [Suspect]
     Dosage: 8-6-6 UNITS/DAY
     Route: 058
     Dates: start: 20110422, end: 20110425
  2. METFORMIN HYDROCHLORIDE [Concomitant]
     Route: 048
     Dates: start: 20110425, end: 20110504
  3. APIDRA [Suspect]
     Route: 058
     Dates: start: 20110427, end: 20110504
  4. APIDRA [Suspect]
     Dosage: 8-8-0 UNITS/DAY
     Route: 058
     Dates: start: 20110505, end: 20110505
  5. METFORMIN HYDROCHLORIDE [Concomitant]
     Route: 048
     Dates: start: 20110505, end: 20110510
  6. QUAZEPAM [Concomitant]
     Route: 048
  7. HALOPERIDOL [Concomitant]
     Route: 030
     Dates: start: 20110504, end: 20110504
  8. RISPERIDONE [Concomitant]
     Route: 048
  9. ZOPICLONE [Concomitant]
     Route: 048
  10. ABILIFY [Concomitant]
     Route: 048
  11. APIDRA [Suspect]
     Indication: DIABETES MELLITUS
     Route: 058
     Dates: start: 20110420, end: 20110420
  12. APIDRA [Suspect]
     Dosage: 4-4-6 UNITS/DAY
     Route: 058
     Dates: start: 20110421, end: 20110421
  13. METFORMIN HYDROCHLORIDE [Concomitant]
     Indication: DIABETES MELLITUS
     Route: 048
     Dates: start: 20110421, end: 20110424
  14. ESTAZOLAM [Concomitant]
     Route: 048
  15. TASMOLIN [Concomitant]
     Route: 030
     Dates: start: 20110504, end: 20110504
  16. APIDRA [Suspect]
     Dosage: 8-6-8 UNITS/DAY
     Route: 058
     Dates: start: 20110426, end: 20110426
  17. PHENOBARBITAL TAB [Concomitant]
     Route: 065
     Dates: start: 20110504, end: 20110504

REACTIONS (2)
  - SCHIZOPHRENIA [None]
  - HYPOPHAGIA [None]
